FAERS Safety Report 5587456-6 (Version None)
Quarter: 2008Q1

REPORT INFORMATION
  Report Type: 
  Country: None (occurrence: None)
  Receive Date: 20080110
  Receipt Date: 20080103
  Transmission Date: 20080703
  Serious: Yes (Hospitalization, Other)
  Sender: FDA-Public Use
  Company Number: US-BOEHRINGER INGELHEIM PHARMACEUTICALS, INC.-2007-BP-25105BP

PATIENT
  Age: 58 Year
  Sex: Female

DRUGS (16)
  1. MOBIC [Suspect]
     Indication: OSTEOARTHRITIS
     Dates: start: 20070214, end: 20070222
  2. MOBIC [Suspect]
     Dates: start: 20070222, end: 20071203
  3. STUDY DRUG [Suspect]
     Indication: OSTEOARTHRITIS
     Dates: start: 20070207, end: 20071203
  4. STUDY DRUG [Suspect]
     Dates: start: 20070131
  5. BENADRYL [Concomitant]
  6. POTASSIUM CHLORIDE [Concomitant]
  7. FUROSEMIDE [Concomitant]
  8. CLONIDINE [Concomitant]
  9. MICARDIS HCT [Concomitant]
  10. METFORMIN HCL [Concomitant]
  11. IRON [Concomitant]
  12. VITAMIN B-12 [Concomitant]
  13. ASCORBIC ACID [Concomitant]
  14. PEPCID AC [Concomitant]
     Indication: GASTROOESOPHAGEAL REFLUX DISEASE
     Dates: start: 20070901
  15. NIFEDIPINE [Concomitant]
  16. ESCITALOPRAM [Concomitant]

REACTIONS (4)
  - ABDOMINAL PAIN [None]
  - DYSPEPSIA [None]
  - GASTROOESOPHAGEAL REFLUX DISEASE [None]
  - HIATUS HERNIA [None]
